FAERS Safety Report 11246489 (Version 2)
Quarter: 2015Q3

REPORT INFORMATION
  Report Type: Spontaneous
  Country: GB (occurrence: GB)
  Receive Date: 20150708
  Receipt Date: 20150803
  Transmission Date: 20151125
  Serious: Yes (Hospitalization)
  Sender: FDA-Public Use
  Company Number: GB-BEH-2015052142

PATIENT
  Age: 67 Year
  Sex: Male

DRUGS (4)
  1. MYCOPHENYLATE [Concomitant]
     Indication: MYASTHENIA GRAVIS
     Route: 048
  2. PRIVIGEN [Suspect]
     Active Substance: HUMAN IMMUNOGLOBULIN G
     Indication: MYASTHENIA GRAVIS
     Dosage: FREQUENCY: 4/52
     Route: 042
     Dates: start: 20150609, end: 20150609
  3. PREDNISOLONE 14/3 MG [Concomitant]
     Active Substance: PREDNISOLONE
     Indication: MYASTHENIA GRAVIS
     Dosage: FREQUENCY: ALTERNATE DAYS
     Route: 048
  4. PRIVIGEN [Suspect]
     Active Substance: HUMAN IMMUNOGLOBULIN G
     Indication: OCULAR MYASTHENIA
     Dosage: FREQUENCY: 4/52
     Route: 042
     Dates: start: 20150609, end: 20150609

REACTIONS (8)
  - Brain stem stroke [Recovering/Resolving]
  - Vertigo [Unknown]
  - Ischaemic stroke [Recovering/Resolving]
  - Nausea [Recovering/Resolving]
  - Product use issue [None]
  - Ataxia [Unknown]
  - Vomiting [Unknown]
  - Balance disorder [Not Recovered/Not Resolved]

NARRATIVE: CASE EVENT DATE: 201506
